FAERS Safety Report 11052424 (Version 1)
Quarter: 2015Q2

REPORT INFORMATION
  Report Type: Spontaneous
  Country: DE (occurrence: None)
  Receive Date: 20150417
  Receipt Date: 20150417
  Transmission Date: 20150821
  Serious: Yes (Life-Threatening, Disabling, Other)
  Sender: FDA-Public Use
  Company Number: 2015FE00472

PATIENT
  Age: 24 Year
  Sex: Female

DRUGS (3)
  1. PARTUSISTEN (FENOTEROL HYDROBROMIDE) [Concomitant]
  2. MEPTID /00633901/ (MEPTAZINOL) [Concomitant]
  3. PROPESS (DINOPROSTONE) VAGINAL DELIVERY SYSTEM [Suspect]
     Active Substance: DINOPROSTONE
     Indication: LABOUR INDUCTION
     Dosage: 1 TIME DAILY, VAGINAL
     Route: 067
     Dates: start: 20150102, end: 20150102

REACTIONS (6)
  - Uterine rupture [None]
  - Caesarean section [None]
  - Contraindicated drug administered [None]
  - Uterine hyperstimulation [None]
  - Foetal distress syndrome [None]
  - Off label use [None]

NARRATIVE: CASE EVENT DATE: 20150102
